FAERS Safety Report 7074658-5 (Version None)
Quarter: 2010Q4

REPORT INFORMATION
  Report Type: 
  Country: None (occurrence: None)
  Receive Date: 20101029
  Receipt Date: 20101019
  Transmission Date: 20110411
  Serious: Yes (Hospitalization)
  Sender: FDA-Public Use
  Company Number: B0674192A

PATIENT
  Sex: Female
  Weight: 19 kg

DRUGS (5)
  1. AUGMENTIN '125' [Suspect]
     Indication: LYMPHADENITIS
     Route: 048
     Dates: start: 20100819, end: 20100830
  2. PERIACTIN [Concomitant]
     Dosage: 9.99ML PER DAY
     Route: 048
     Dates: start: 20100816, end: 20100830
  3. LEFTOSE [Concomitant]
     Dosage: 9.99ML PER DAY
     Route: 048
     Dates: start: 20100816, end: 20100830
  4. FLOMOX [Concomitant]
     Dosage: 99.9MG PER DAY
     Route: 048
     Dates: start: 20100816, end: 20100818
  5. BROACT [Concomitant]
     Dosage: 1G PER DAY
     Route: 042
     Dates: start: 20100816, end: 20100816

REACTIONS (9)
  - ALANINE AMINOTRANSFERASE INCREASED [None]
  - ASPARTATE AMINOTRANSFERASE INCREASED [None]
  - BLOOD ALKALINE PHOSPHATASE INCREASED [None]
  - BLOOD LACTATE DEHYDROGENASE INCREASED [None]
  - C-REACTIVE PROTEIN INCREASED [None]
  - HEPATIC FUNCTION ABNORMAL [None]
  - PYREXIA [None]
  - RASH [None]
  - WHITE BLOOD CELL COUNT DECREASED [None]
